FAERS Safety Report 25271205 (Version 1)
Quarter: 2025Q2

REPORT INFORMATION
  Report Type: Spontaneous
  Country: US (occurrence: US)
  Receive Date: 20250506
  Receipt Date: 20250506
  Transmission Date: 20250717
  Serious: Yes (Other)
  Sender: COOPERSURGICAL
  Company Number: US-COOPERSURGICAL, INC.-2025CPS003321

PATIENT
  Age: 31 Year
  Sex: Female
  Weight: 53.968 kg

DRUGS (2)
  1. PARAGARD T 380A [Suspect]
     Active Substance: COPPER
     Route: 015
     Dates: start: 20110318
  2. ALBUTEROL [Concomitant]
     Active Substance: ALBUTEROL
     Dates: start: 199901

REACTIONS (11)
  - Reproductive complication associated with device [Not Recovered/Not Resolved]
  - Infertility female [Not Recovered/Not Resolved]
  - Abortion spontaneous [Recovered/Resolved]
  - Device breakage [Not Recovered/Not Resolved]
  - Foreign body in reproductive tract [Not Recovered/Not Resolved]
  - Complication of device removal [Not Recovered/Not Resolved]
  - Dysuria [Recovered/Resolved]
  - Emotional distress [Not Recovered/Not Resolved]
  - Emotional disorder [Not Recovered/Not Resolved]
  - Abnormal uterine bleeding [Recovered/Resolved]
  - Pelvic pain [Recovered/Resolved]

NARRATIVE: CASE EVENT DATE: 20151207
